FAERS Safety Report 14512191 (Version 1)
Quarter: 2018Q1

REPORT INFORMATION
  Report Type: Spontaneous
  Country: US (occurrence: US)
  Receive Date: 20180209
  Receipt Date: 20180209
  Transmission Date: 20180509
  Serious: No
  Sender: FDA-Public Use
  Company Number: US-DSJP-DSU-2017-118724

PATIENT
  Sex: Female

DRUGS (3)
  1. EVOXAC [Suspect]
     Active Substance: CEVIMELINE HYDROCHLORIDE
     Dosage: 30 MG, UNK
     Route: 048
  2. EVOXAC AG [Suspect]
     Active Substance: CEVIMELINE HYDROCHLORIDE
     Indication: SJOGREN^S SYNDROME
     Dosage: 30 MG, UNK
  3. EVOXAC [Suspect]
     Active Substance: CEVIMELINE HYDROCHLORIDE
     Indication: SJOGREN^S SYNDROME
     Dosage: 30 MG, UNK
     Route: 048

REACTIONS (2)
  - Drug ineffective [Unknown]
  - Foreign body sensation in eyes [Unknown]
